FAERS Safety Report 5410367-3 (Version None)
Quarter: 2007Q3

REPORT INFORMATION
  Report Type: 
  Country: None (occurrence: None)
  Receive Date: 20070808
  Receipt Date: 20070727
  Transmission Date: 20080115
  Serious: Yes (Hospitalization)
  Sender: FDA-Public Use
  Company Number: 2007S1000145

PATIENT
  Age: 49 Year
  Sex: Male

DRUGS (2)
  1. SORIATANE [Suspect]
     Indication: DRUG USE FOR UNKNOWN INDICATION
     Dosage: ;PO
     Route: 048
  2. TIGASON  /00530101/ (ETRETINATE) [Suspect]
     Indication: PSORIASIS
     Dosage: ;PO
     Route: 048
     Dates: start: 19840101

REACTIONS (6)
  - CONDITION AGGRAVATED [None]
  - DRUG INEFFECTIVE [None]
  - DRUG RESISTANCE [None]
  - ERYTHRODERMIC PSORIASIS [None]
  - HYPERCHOLESTEROLAEMIA [None]
  - PSORIASIS [None]
